FAERS Safety Report 18236484 (Version 2)
Quarter: 2020Q4

REPORT INFORMATION
  Report Type: Spontaneous
  Country: FR (occurrence: FR)
  Receive Date: 20200907
  Receipt Date: 20201109
  Transmission Date: 20210113
  Serious: Yes (Other)
  Sender: FDA-Public Use
  Company Number: FR-US-PROVELL PHARMACEUTICALS LLC-E2B_90079838

PATIENT
  Age: 60 Year
  Sex: Female

DRUGS (5)
  1. LEVOTHYROX [Suspect]
     Active Substance: LEVOTHYROXINE
     Dosage: FOR 12 DAYS
     Dates: start: 2020, end: 2020
  2. LYSANXIA [Concomitant]
     Active Substance: PRAZEPAM
     Indication: PRODUCT USED FOR UNKNOWN INDICATION
  3. LEVOTHYROX [Suspect]
     Active Substance: LEVOTHYROXINE
     Dosage: REINTRODUCED
     Dates: start: 202005, end: 2020
  4. LEVOTHYROX [Suspect]
     Active Substance: LEVOTHYROXINE
     Dosage: FOR 5 WEEKS
     Dates: start: 2020
  5. LEVOTHYROX [Suspect]
     Active Substance: LEVOTHYROXINE
     Indication: THYROID DISORDER

REACTIONS (15)
  - Pain [Recovering/Resolving]
  - Hyperthyroidism [Unknown]
  - Palpitations [Unknown]
  - Burning sensation [Recovering/Resolving]
  - Tremor [Unknown]
  - Depression [Recovering/Resolving]
  - Suffocation feeling [Unknown]
  - Vomiting [Unknown]
  - Dizziness [Recovering/Resolving]
  - Gait disturbance [Recovering/Resolving]
  - Weight increased [Recovering/Resolving]
  - Suicidal ideation [Recovering/Resolving]
  - Drug intolerance [Unknown]
  - Diarrhoea [Unknown]
  - Blood thyroid stimulating hormone abnormal [Unknown]

NARRATIVE: CASE EVENT DATE: 2020
